FAERS Safety Report 24446991 (Version 1)
Quarter: 2024Q4

REPORT INFORMATION
  Report Type: Spontaneous
  Country: FI (occurrence: FI)
  Receive Date: 20241016
  Receipt Date: 20241016
  Transmission Date: 20250115
  Serious: Yes (Life-Threatening, Hospitalization, Other)
  Sender: MYLAN
  Company Number: FI-Accord-366334

PATIENT
  Age: 29 Year
  Sex: Male

DRUGS (15)
  1. PANTOPRAZOLE [Suspect]
     Active Substance: PANTOPRAZOLE
     Indication: Oesophageal discomfort
     Dosage: 80 MILLIGRAM
     Route: 042
  2. OXYCODONE [Suspect]
     Active Substance: OXYCODONE
     Indication: Product used for unknown indication
     Dosage: BOLUS
     Route: 042
  3. LEFLUNOMIDE [Suspect]
     Active Substance: LEFLUNOMIDE
     Indication: Juvenile psoriatic arthritis
     Dosage: UNK
     Route: 065
  4. DESONIDE [Suspect]
     Active Substance: DESONIDE
     Indication: Product used for unknown indication
     Dosage: UNK
     Route: 061
  5. CEFUROXIME [Suspect]
     Active Substance: CEFUROXIME
     Indication: Product used for unknown indication
     Dosage: UNK
     Route: 042
  6. CYCLOSPORINE [Suspect]
     Active Substance: CYCLOSPORINE
     Indication: Product used for unknown indication
     Dosage: UNK
     Route: 065
  7. VALACYCLOVIR HYDROCHLORIDE [Suspect]
     Active Substance: VALACYCLOVIR HYDROCHLORIDE
     Indication: Product used for unknown indication
     Dosage: UNK
     Route: 042
  8. LEVOFLOXACIN [Suspect]
     Active Substance: LEVOFLOXACIN
     Indication: Product used for unknown indication
     Dosage: UNK
     Route: 065
  9. KETAMINE [Suspect]
     Active Substance: KETAMINE
     Indication: Product used for unknown indication
     Dosage: UNK
     Route: 042
  10. SULFASALAZINE [Suspect]
     Active Substance: SULFASALAZINE
     Indication: Juvenile psoriatic arthritis
     Dosage: UNK
     Route: 042
  11. CYCLOSPORINE [Concomitant]
     Active Substance: CYCLOSPORINE
     Indication: Product used for unknown indication
     Dosage: UNK
     Route: 065
  12. DEXAMETHASONE [Concomitant]
     Active Substance: DEXAMETHASONE
     Indication: Product used for unknown indication
     Dosage: UNK
     Route: 065
  13. BETAMETHASONE [Concomitant]
     Active Substance: BETAMETHASONE
     Indication: Product used for unknown indication
     Dosage: FOR THE SCALP
     Route: 065
  14. BETAMETHASONE [Concomitant]
     Active Substance: BETAMETHASONE
     Indication: Product used for unknown indication
     Dosage: FOR THE BODY
     Route: 065
  15. METHYLPREDNISOLONE [Concomitant]
     Active Substance: METHYLPREDNISOLONE
     Indication: Oesophageal discomfort
     Dosage: 0.8 MILLIGRAM/KILOGRAM (INITIAL DOSE OF APPROXIMATELY 0.8 MG/KG)
     Route: 042

REACTIONS (23)
  - Toxic epidermal necrolysis [Recovering/Resolving]
  - SJS-TEN overlap [Recovered/Resolved with Sequelae]
  - Pneumonia [Unknown]
  - Productive cough [Unknown]
  - Influenza like illness [Recovered/Resolved with Sequelae]
  - Skin erosion [Recovered/Resolved with Sequelae]
  - Tenderness [Recovered/Resolved with Sequelae]
  - Tachycardia [Recovered/Resolved with Sequelae]
  - Dysuria [Unknown]
  - Odynophagia [Recovered/Resolved with Sequelae]
  - Oral mucosa erosion [Recovered/Resolved with Sequelae]
  - Oropharyngeal swelling [Recovered/Resolved with Sequelae]
  - Oral pain [Recovered/Resolved with Sequelae]
  - Mouth swelling [Recovered/Resolved with Sequelae]
  - Conjunctival hyperaemia [Recovered/Resolved with Sequelae]
  - Eyelid irritation [Recovered/Resolved with Sequelae]
  - Eye pain [Recovered/Resolved with Sequelae]
  - Eye discharge [Recovered/Resolved with Sequelae]
  - Swelling of eyelid [Recovered/Resolved with Sequelae]
  - Pyrexia [Recovered/Resolved with Sequelae]
  - Malaise [Recovered/Resolved with Sequelae]
  - Rash [Recovered/Resolved with Sequelae]
  - Pigmentation disorder [Unknown]
